FAERS Safety Report 22975853 (Version 2)
Quarter: 2023Q4

REPORT INFORMATION
  Report Type: Report from Study
  Country: US (occurrence: US)
  Receive Date: 20230925
  Receipt Date: 20231106
  Transmission Date: 20240110
  Serious: Yes (Other)
  Sender: FDA-Public Use
  Company Number: US-JNJFOC-20230940191

PATIENT
  Age: 62 Year
  Sex: Female

DRUGS (2)
  1. SPRAVATO [Suspect]
     Active Substance: ESKETAMINE
     Indication: Depression
     Dosage: ^56 MG, 2 TOTAL DOSES^
     Dates: start: 20230828, end: 20230830
  2. SPRAVATO [Suspect]
     Active Substance: ESKETAMINE
     Dosage: ^84 MG, 14 TOTAL DOSES^
     Dates: start: 20230906, end: 20231025

REACTIONS (9)
  - Shoulder operation [Unknown]
  - Periarthritis [Unknown]
  - Disturbance in attention [Recovering/Resolving]
  - Hypersomnia [Unknown]
  - Taste disorder [Unknown]
  - Hyperacusis [Unknown]
  - Anxiety [Recovering/Resolving]
  - Apathy [Unknown]
  - Injury [Unknown]

NARRATIVE: CASE EVENT DATE: 20230101
